FAERS Safety Report 23508754 (Version 1)
Quarter: 2024Q1

REPORT INFORMATION
  Report Type: Spontaneous
  Country: FR (occurrence: FR)
  Receive Date: 20240209
  Receipt Date: 20240209
  Transmission Date: 20240410
  Serious: Yes (Hospitalization)
  Sender: FDA-Public Use
  Company Number: None

PATIENT
  Age: 64 Year
  Sex: Male
  Weight: 84 kg

DRUGS (3)
  1. DEXAMETHASONE [Suspect]
     Active Substance: DEXAMETHASONE
     Indication: Waldenstrom^s macroglobulinaemia
     Route: 042
     Dates: start: 20231219, end: 20231219
  2. CYCLOPHOSPHAMIDE [Suspect]
     Active Substance: CYCLOPHOSPHAMIDE
     Indication: Waldenstrom^s macroglobulinaemia
     Route: 048
     Dates: start: 20231219, end: 20231224
  3. RITUXIMAB [Suspect]
     Active Substance: RITUXIMAB
     Indication: Waldenstrom^s macroglobulinaemia
     Dosage: RITUXIMAB ((MAMMIFERE/HAMSTER/CELLULES CHO))
     Route: 042
     Dates: start: 20231219, end: 20231219

REACTIONS (3)
  - Bacteraemia [Recovered/Resolved]
  - Pancytopenia [Recovering/Resolving]
  - Parvovirus B19 infection [Recovering/Resolving]

NARRATIVE: CASE EVENT DATE: 20231229
